FAERS Safety Report 5405116-9 (Version None)
Quarter: 2007Q3

REPORT INFORMATION
  Report Type: 
  Country: None (occurrence: None)
  Receive Date: 20070803
  Receipt Date: 20070725
  Transmission Date: 20080115
  Serious: Yes (Hospitalization)
  Sender: FDA-Public Use
  Company Number: US-SHR-US-2007-018370

PATIENT
  Age: 38 Year
  Sex: Female
  Weight: 92.063 kg

DRUGS (2)
  1. BETASERON [Suspect]
     Indication: RELAPSING-REMITTING MULTIPLE SCLEROSIS
     Dosage: 8 MIU, EVERY 2D
     Route: 058
     Dates: start: 20060320
  2. DARVOCET [Concomitant]
     Dosage: UNK, AS REQ'D
     Route: 048
     Dates: start: 20060301

REACTIONS (3)
  - CERVICAL CYST [None]
  - MENORRHAGIA [None]
  - UTERINE NEOPLASM [None]
